FAERS Safety Report 12227303 (Version 1)
Quarter: 2016Q1

REPORT INFORMATION
  Report Type: Spontaneous
  Country: US (occurrence: US)
  Receive Date: 20160331
  Receipt Date: 20160331
  Transmission Date: 20160526
  Serious: Yes (Other)
  Sender: FDA-Public Use
  Company Number: PHHY2016US039918

PATIENT
  Age: 50 Year
  Sex: Female

DRUGS (4)
  1. BEXAROTENE. [Suspect]
     Active Substance: BEXAROTENE
     Indication: MYCOSIS FUNGOIDES
     Dosage: 150 MG, QD
     Route: 048
  2. TRETINOIN. [Suspect]
     Active Substance: TRETINOIN
     Indication: MYCOSIS FUNGOIDES
     Dosage: UNK, QW
     Route: 065
  3. TRIAMCINOLONE [Concomitant]
     Active Substance: TRIAMCINOLONE
     Indication: MYCOSIS FUNGOIDES
     Dosage: 40 MG/ML, UNK
     Route: 026
  4. CLOBETASOL [Suspect]
     Active Substance: CLOBETASOL
     Indication: MYCOSIS FUNGOIDES
     Dosage: BID
     Route: 061

REACTIONS (1)
  - Drug resistance [Unknown]
